FAERS Safety Report 12390718 (Version 1)
Quarter: 2016Q2

REPORT INFORMATION
  Report Type: Spontaneous
  Country: FI (occurrence: FI)
  Receive Date: 20160520
  Receipt Date: 20160520
  Transmission Date: 20160815
  Serious: Yes (Hospitalization)
  Sender: FDA-Public Use
  Company Number: FI-PFIZER INC-2016262137

PATIENT
  Age: 74 Year
  Sex: Male

DRUGS (13)
  1. TREXAN [Suspect]
     Active Substance: METHOTREXATE SODIUM
     Dosage: 15 MG, WEEKLY (1 IN 1 W)
     Route: 048
  2. DIFORMIN RETARD [Concomitant]
     Active Substance: METFORMIN HYDROCHLORIDE
     Dosage: 500 MG, 2X/DAY
     Route: 048
  3. AMOXICILLIN TRIHYDRATE [Suspect]
     Active Substance: AMOXICILLIN
     Dosage: UNK
     Route: 065
  4. VIZARSIN [Concomitant]
     Dosage: UNK, AS NEEDED (PER NEED)
     Route: 048
  5. GEFINA [Concomitant]
     Dosage: 5 MG, 1X/DAY
     Route: 048
  6. LOSARTAN/HYDROCHLOROTHIAZIDE ORION [Concomitant]
     Dosage: UNK
     Route: 048
  7. AMLODIPIN ORION [Concomitant]
     Dosage: 5 MG, 1X/DAY
     Route: 048
  8. PARA-TABS [Concomitant]
     Active Substance: ACETAMINOPHEN
     Dosage: UNK, AS NEEDED (PER NEED)
     Route: 048
  9. TREXAN [Suspect]
     Active Substance: METHOTREXATE SODIUM
     Indication: SERONEGATIVE ARTHRITIS
     Dosage: 10 MG, WEEKLY (1 IN 1 W)
     Route: 048
     Dates: start: 201602
  10. ORADEXON [Suspect]
     Active Substance: DEXAMETHASONE
     Indication: PROPHYLAXIS
     Dosage: UNK
     Route: 042
  11. KLEXANE [Suspect]
     Active Substance: ENOXAPARIN
     Indication: PROPHYLAXIS
     Dosage: UNK
     Route: 065
  12. ZINACEF [Suspect]
     Active Substance: CEFUROXIME SODIUM
     Dosage: UNK
     Route: 065
  13. THYROXIN [Concomitant]
     Active Substance: LEVOTHYROXINE
     Dosage: UNK, TU AND THU 1,5 TABL., OTHER D 2 TABL.
     Route: 048

REACTIONS (3)
  - Pneumonia [Not Recovered/Not Resolved]
  - Rash erythematous [Not Recovered/Not Resolved]
  - Lung disorder [Not Recovered/Not Resolved]

NARRATIVE: CASE EVENT DATE: 201604
